FAERS Safety Report 8037763-2 (Version None)
Quarter: 2012Q1

REPORT INFORMATION
  Report Type: 
  Country: None (occurrence: None)
  Receive Date: 20120111
  Receipt Date: 20120105
  Transmission Date: 20120608
  Serious: Yes (Hospitalization)
  Sender: FDA-Public Use
  Company Number: JP-SANOFI-AVENTIS-2011SA077659

PATIENT
  Age: 78 Year
  Sex: Female
  Weight: 46 kg

DRUGS (2)
  1. PLAVIX [Suspect]
     Indication: CEREBRAL INFARCTION
     Route: 065
     Dates: start: 20111001, end: 20111001
  2. ASPIRIN [Concomitant]
     Indication: CEREBRAL INFARCTION
     Dates: start: 20110901

REACTIONS (1)
  - LIVER DISORDER [None]
